FAERS Safety Report 8340803-4 (Version None)
Quarter: 2012Q2

REPORT INFORMATION
  Report Type: 
  Country: None (occurrence: None)
  Receive Date: 20120503
  Receipt Date: 20120503
  Transmission Date: 20120825
  Serious: Yes (Other)
  Sender: FDA-Public Use
  Company Number: None

PATIENT
  Age: 49 Year
  Sex: Female

DRUGS (1)
  1. CIMZIA [Suspect]
     Indication: RHEUMATOID ARTHRITIS
     Dosage: 400MG Q30DAYS S-Q
     Route: 058
     Dates: start: 20090101, end: 20120101

REACTIONS (2)
  - HYPOAESTHESIA [None]
  - PARAESTHESIA [None]
